FAERS Safety Report 24106897 (Version 1)
Quarter: 2024Q3

REPORT INFORMATION
  Report Type: Spontaneous
  Country: US (occurrence: US)
  Receive Date: 20240717
  Receipt Date: 20240717
  Transmission Date: 20241017
  Serious: No
  Sender: LEO PHARM
  Company Number: US-LEO Pharma-371988

PATIENT
  Age: 22 Year
  Sex: Female

DRUGS (2)
  1. ADBRY [Suspect]
     Active Substance: TRALOKINUMAB-LDRM
     Indication: Dermatitis atopic
     Dates: start: 20240711
  2. ADBRY [Suspect]
     Active Substance: TRALOKINUMAB-LDRM
     Indication: Dermatitis atopic
     Dates: start: 20240711

REACTIONS (4)
  - Ocular hyperaemia [Unknown]
  - Fatigue [Unknown]
  - Swelling of eyelid [Unknown]
  - Tremor [Unknown]

NARRATIVE: CASE EVENT DATE: 20240712
